FAERS Safety Report 11246398 (Version 1)
Quarter: 2015Q2

REPORT INFORMATION
  Report Type: Spontaneous
  Country: US (occurrence: None)
  Receive Date: 20150616
  Receipt Date: 20150616
  Transmission Date: 20150821
  Serious: Yes (Other)
  Sender: FDA-Public Use
  Company Number: USW201502-000049

PATIENT
  Sex: Male

DRUGS (1)
  1. APOKYN [Suspect]
     Active Substance: APOMORPHINE HYDROCHLORIDE
     Indication: PARKINSON^S DISEASE
     Dosage: 0.6 ML, 3 TIMES A DAY, SITE: VARIES, SUBCUTANEOUS
     Route: 058
     Dates: start: 20140307

REACTIONS (3)
  - Fatigue [None]
  - Parkinson^s disease [None]
  - Drug ineffective [None]
